FAERS Safety Report 4287255-1 (Version None)
Quarter: 2004Q1

REPORT INFORMATION
  Report Type: 
  Country: None (occurrence: None)
  Receive Date: 20040126
  Receipt Date: 20031112
  Transmission Date: 20041129
  Serious: No
  Sender: FDA-Public Use
  Company Number: USA030639453

PATIENT
  Age: 79 Year
  Sex: Female
  Weight: 60 kg

DRUGS (11)
  1. FORTEO [Suspect]
     Indication: BONE DENSITY DECREASED
     Dosage: 20 UG/DAY
     Dates: start: 20030629
  2. VIOXX [Concomitant]
  3. ZOLOFT [Concomitant]
  4. MULTIVITAMIN [Concomitant]
  5. CALCIUM [Concomitant]
  6. MAGNESIUM [Concomitant]
  7. MIACALCIN [Concomitant]
  8. BEXTRA [Concomitant]
  9. ACTONEL [Concomitant]
  10. QUININE SULFATE) [Concomitant]
  11. CALCIMATE [Concomitant]

REACTIONS (4)
  - CARPAL TUNNEL SYNDROME [None]
  - FATIGUE [None]
  - PRURITUS [None]
  - URTICARIA [None]
